FAERS Safety Report 6736257-1 (Version None)
Quarter: 2010Q2

REPORT INFORMATION
  Report Type: 
  Country: None (occurrence: None)
  Receive Date: 20100521
  Receipt Date: 20100420
  Transmission Date: 20101027
  Serious: Yes (Death)
  Sender: FDA-Public Use
  Company Number: US-GENZYME-CLOF-1000974

PATIENT
  Age: 65 Year

DRUGS (3)
  1. CLOLAR [Suspect]
     Indication: LYMPHOMA
     Dosage: 40 UNK, UNK
     Route: 065
  2. MELPHALAN HYDROCHLORIDE [Suspect]
     Indication: LYMPHOMA
     Dosage: UNK UNK, UNK
     Route: 065
  3. ALEMTUZUMAB [Suspect]
     Indication: LYMPHOMA
     Dosage: UNK UNK, UNK
     Route: 065

REACTIONS (2)
  - HEPATIC FAILURE [None]
  - RENAL FAILURE [None]
